FAERS Safety Report 7938007-X (Version None)
Quarter: 2011Q4

REPORT INFORMATION
  Report Type: 
  Country: None (occurrence: None)
  Receive Date: 20111123
  Receipt Date: 20111117
  Transmission Date: 20120403
  Serious: Yes (Hospitalization)
  Sender: FDA-Public Use
  Company Number: US-US-EMD SERONO, INC.-7067235

PATIENT
  Sex: Male

DRUGS (2)
  1. EGRIFTA [Suspect]
     Route: 058
     Dates: start: 20110617
  2. EGRIFTA [Suspect]
     Indication: LIPODYSTROPHY ACQUIRED
     Route: 058

REACTIONS (1)
  - OVERDOSE [None]
